FAERS Safety Report 7878575-X (Version None)
Quarter: 2011Q4

REPORT INFORMATION
  Report Type: 
  Country: None (occurrence: None)
  Receive Date: 20111014
  Receipt Date: 20100823
  Transmission Date: 20120403
  Serious: Yes (Hospitalization)
  Sender: FDA-Public Use
  Company Number: 1000014465

PATIENT
  Age: 60 Year
  Sex: Female

DRUGS (5)
  1. LISINOPRIL [Concomitant]
  2. ATENOLOL [Concomitant]
  3. XANAX [Concomitant]
  4. LEXAPRO [Suspect]
     Indication: ANXIETY
     Dosage: 10 MG(10 MG, 1 IN 1 D), ORAL
     Route: 048
     Dates: start: 20100416, end: 20100420
  5. SIMVASTATIN [Concomitant]

REACTIONS (1)
  - HYPONATRAEMIA [None]
